FAERS Safety Report 6486359-2 (Version None)
Quarter: 2009Q4

REPORT INFORMATION
  Report Type: 
  Country: None (occurrence: None)
  Receive Date: 20091207
  Receipt Date: 20091125
  Transmission Date: 20100525
  Serious: Yes (Hospitalization)
  Sender: FDA-Public Use
  Company Number: POMP-1000795

PATIENT
  Age: 2 Year
  Sex: Male
  Weight: 15.9 kg

DRUGS (6)
  1. MYOZYME [Suspect]
     Indication: GLYCOGEN STORAGE DISEASE TYPE II
     Dosage: 650 MG, Q2W, INTRAVENOUS
     Route: 042
     Dates: start: 20071130
  2. ALBUTEROL (SALBUTAMOL SULFATE) [Concomitant]
  3. CARVEDILOL [Concomitant]
  4. PULMICORT [Concomitant]
  5. ENALAPRIL MALEATE AND HYDROCHLOROTHIAZIDE [Concomitant]
  6. PREVACID [Concomitant]

REACTIONS (2)
  - FEMUR FRACTURE [None]
  - PAIN [None]
